FAERS Safety Report 21285221 (Version 5)
Quarter: 2023Q1

REPORT INFORMATION
  Report Type: Report from Study
  Country: US (occurrence: US)
  Receive Date: 20220902
  Receipt Date: 20230206
  Transmission Date: 20230417
  Serious: Yes (Hospitalization, Other)
  Sender: FDA-Public Use
  Company Number: US-BoehringerIngelheim-2021-BI-125812

PATIENT
  Sex: Male

DRUGS (3)
  1. OFEV [Suspect]
     Active Substance: NINTEDANIB
     Indication: Idiopathic pulmonary fibrosis
     Route: 048
     Dates: start: 20171130
  2. TYVASO [Concomitant]
     Active Substance: TREPROSTINIL
     Indication: Product used for unknown indication
  3. TYVASO [Concomitant]
     Active Substance: TREPROSTINIL
     Dosage: 2 BREATHS PER TREATMENT SESSION

REACTIONS (9)
  - Cerebrovascular accident [Unknown]
  - Blindness [Unknown]
  - Subdural haematoma [Unknown]
  - Cerebral haemorrhage [Unknown]
  - Fall [Unknown]
  - Rhinorrhoea [Unknown]
  - Throat irritation [Unknown]
  - Retching [Unknown]
  - Headache [Unknown]
